FAERS Safety Report 17375089 (Version 1)
Quarter: 2020Q1

REPORT INFORMATION
  Report Type: Spontaneous
  Country: FR (occurrence: FR)
  Receive Date: 20200206
  Receipt Date: 20200206
  Transmission Date: 20200409
  Serious: Yes (Life-Threatening)
  Sender: FDA-Public Use
  Company Number: FR-TEVA-2020-FR-1181507

PATIENT
  Age: 75 Year
  Sex: Female
  Weight: 110 kg

DRUGS (9)
  1. SKENAN [Suspect]
     Active Substance: MORPHINE SULFATE
     Indication: PAIN
     Dosage: 2 DF; EXTENDED-RELEASE CAPSULE MICROGRANULES
     Route: 048
     Dates: end: 20181229
  2. CALCIPARINE [Concomitant]
     Active Substance: HEPARIN CALCIUM
  3. METFORMINE ARROW 500 MG, COMPRIM? PELLICUL? [Suspect]
     Active Substance: METFORMIN HYDROCHLORIDE
     Indication: TYPE 2 DIABETES MELLITUS
     Dosage: 3 DF
     Route: 048
     Dates: start: 20181223, end: 20181227
  4. GABAPENTINE [Concomitant]
     Active Substance: GABAPENTIN
  5. DEBRIDAT [Concomitant]
     Active Substance: TRIMEBUTINE MALEATE
  6. ACIDE FOLIQUE [Concomitant]
     Active Substance: FOLIC ACID
  7. PIPERACILLINE TAZOBACTAM MYLAN [Suspect]
     Active Substance: PIPERACILLIN SODIUM\TAZOBACTAM SODIUM
     Indication: PYELONEPHRITIS
     Dosage: 12 GRAM
     Route: 042
     Dates: start: 20181223, end: 20181227
  8. LEVOTHYROX [Concomitant]
     Active Substance: LEVOTHYROXINE
  9. OFLOXACINE MYLAN [Suspect]
     Active Substance: OFLOXACIN
     Indication: PYELONEPHRITIS
     Route: 065
     Dates: start: 20181223, end: 20181227

REACTIONS (3)
  - Coma [Recovered/Resolved]
  - Encephalopathy [Recovered/Resolved]
  - Respiratory distress [Recovered/Resolved]

NARRATIVE: CASE EVENT DATE: 20181226
